FAERS Safety Report 10896058 (Version 4)
Quarter: 2015Q2

REPORT INFORMATION
  Report Type: Spontaneous
  Country: AT (occurrence: AT)
  Receive Date: 20150308
  Receipt Date: 20150628
  Transmission Date: 20150821
  Serious: Yes (Hospitalization)
  Sender: FDA-Public Use
  Company Number: AT-AMGEN-AUTSP2015020191

PATIENT
  Age: 41 Year
  Sex: Female
  Weight: 60 kg

DRUGS (3)
  1. AGOPTON [Concomitant]
     Indication: GASTRITIS
     Dosage: 15 MG, AS NEEDED
     Dates: start: 2007
  2. DEFLAMAT                           /00372302/ [Concomitant]
     Indication: ANKYLOSING SPONDYLITIS
     Dosage: 75 MG, AS NEEDED
     Dates: start: 2007
  3. ENBREL [Suspect]
     Active Substance: ETANERCEPT
     Indication: ANKYLOSING SPONDYLITIS
     Dosage: 50 MG, WEEKLY
     Route: 065
     Dates: start: 200904, end: 201502

REACTIONS (1)
  - Dermatofibrosarcoma protuberans [Recovered/Resolved]

NARRATIVE: CASE EVENT DATE: 201412
